FAERS Safety Report 8998742 (Version 1)
Quarter: 2013Q1

REPORT INFORMATION
  Report Type: Spontaneous
  Country: US (occurrence: US)
  Receive Date: 20130103
  Receipt Date: 20130103
  Transmission Date: 20140127
  Serious: No
  Sender: FDA-Public Use
  Company Number: US-PFIZER INC-2012332759

PATIENT
  Age: 61 Year
  Sex: Male
  Weight: 74.83 kg

DRUGS (7)
  1. ADVIL PM [Suspect]
     Indication: INSOMNIA
     Dosage: 200 MG, UNK
  2. CITALOPRAM [Concomitant]
     Dosage: HALF TABLET OF 20MG BEFORE BED TIME, DAILY
  3. CITALOPRAM [Concomitant]
     Dosage: 20 MG, DAILY
  4. NEOSPORIN /USA/ [Concomitant]
     Indication: INFECTION
     Dosage: UNK
  5. ADVIL [Concomitant]
     Dosage: 200 MG, UNK
  6. TUMS [Concomitant]
     Indication: ABDOMINAL DISCOMFORT
     Dosage: UNK
  7. FISH OIL [Concomitant]
     Dosage: UNK

REACTIONS (2)
  - Intentional drug misuse [Unknown]
  - Ageusia [Not Recovered/Not Resolved]
